FAERS Safety Report 22140531 (Version 1)
Quarter: 2023Q1

REPORT INFORMATION
  Report Type: Spontaneous
  Country: DE (occurrence: DE)
  Receive Date: 20230327
  Receipt Date: 20230327
  Transmission Date: 20230417
  Serious: Yes (Disabling, Other)
  Sender: FDA-Public Use
  Company Number: None

PATIENT
  Sex: Male

DRUGS (1)
  1. AMIODARONE [Suspect]
     Active Substance: AMIODARONE
     Indication: Cardiac operation
     Dosage: UNKNOWN
     Route: 065
     Dates: end: 202205

REACTIONS (5)
  - Thyroidectomy [Unknown]
  - Palpitations [Unknown]
  - Atrial flutter [Unknown]
  - Atrial fibrillation [Unknown]
  - Thyroid disorder [Unknown]

NARRATIVE: CASE EVENT DATE: 20221001
